FAERS Safety Report 4535365-3 (Version None)
Quarter: 2004Q4

REPORT INFORMATION
  Report Type: 
  Country: None (occurrence: None)
  Receive Date: 20041222
  Receipt Date: 20041213
  Transmission Date: 20050328
  Serious: Yes (Hospitalization, Other)
  Sender: FDA-Public Use
  Company Number: CA-ABBOTT-04P-028-0284111-00

PATIENT
  Age: 4 Year
  Sex: Male

DRUGS (2)
  1. DEPAKENE [Suspect]
     Indication: EPILEPSY
     Route: 048
  2. DEPAKENE [Suspect]

REACTIONS (6)
  - COMA [None]
  - INFLUENZA LIKE ILLNESS [None]
  - INTUBATION COMPLICATION [None]
  - PANCREATITIS [None]
  - RESPIRATORY DISTRESS [None]
  - SEPTIC SHOCK [None]
